FAERS Safety Report 5225674-7 (Version None)
Quarter: 2007Q1

REPORT INFORMATION
  Report Type: 
  Country: None (occurrence: None)
  Receive Date: 20061201
  Receipt Date: 20061025
  Transmission Date: 20070707
  Serious: No
  Sender: FDA-Public Use
  Company Number: US200610004711

PATIENT
  Age: 45 Year
  Sex: Male

DRUGS (3)
  1. CYMBALTA [Suspect]
     Dosage: SEE IMAGE
     Dates: start: 20060417
  2. SEROQUEL [Concomitant]
  3. KLONOPIN [Concomitant]

REACTIONS (1)
  - MICTURITION DISORDER [None]
